FAERS Safety Report 7624344-5 (Version None)
Quarter: 2011Q3

REPORT INFORMATION
  Report Type: 
  Country: None (occurrence: None)
  Receive Date: 20110720
  Receipt Date: 20110719
  Transmission Date: 20111222
  Serious: Yes (Other)
  Sender: FDA-Public Use
  Company Number: US-CEPHALON-2010002975

PATIENT
  Sex: Female
  Weight: 79 kg

DRUGS (5)
  1. FLEXERIL [Suspect]
     Dates: end: 20100313
  2. CYMBALTA [Concomitant]
     Indication: DEPRESSION
     Dates: end: 20100313
  3. NUVIGIL [Suspect]
     Indication: NARCOLEPSY
     Route: 048
     Dates: start: 20100226, end: 20100311
  4. NUVIGIL [Suspect]
     Route: 048
     Dates: start: 20100312, end: 20100312
  5. MOBIC [Concomitant]
     Indication: FIBROMYALGIA
     Dates: end: 20100313

REACTIONS (3)
  - MATERNAL EXPOSURE DURING PREGNANCY [None]
  - POLYHYDRAMNIOS [None]
  - CAESAREAN SECTION [None]
